FAERS Safety Report 4966015-X (Version None)
Quarter: 2006Q2

REPORT INFORMATION
  Report Type: 
  Country: None (occurrence: None)
  Receive Date: 20060407
  Receipt Date: 20060223
  Transmission Date: 20061013
  Serious: Yes (Life-Threatening)
  Sender: FDA-Public Use
  Company Number: JP-JPN-A200600748

PATIENT
  Age: 70 Year
  Sex: Male
  Weight: 43 kg

DRUGS (12)
  1. PAXIL [Suspect]
     Indication: DEPRESSION
     Dosage: 10MG PER DAY
     Route: 048
     Dates: start: 20060217, end: 20060220
  2. ALEVIATIN [Suspect]
     Indication: EPILEPSY
     Dosage: 100MG TWICE PER DAY
     Route: 048
     Dates: start: 20060210, end: 20060220
  3. BIOFERMIN R [Concomitant]
     Route: 048
  4. TERNELIN [Concomitant]
     Route: 048
  5. MAGMITT [Concomitant]
     Indication: CONSTIPATION
     Dosage: 990MG PER DAY
     Route: 048
  6. ISCOTIN [Concomitant]
     Dosage: 300MG PER DAY
     Route: 048
  7. BAKTAR [Concomitant]
     Route: 048
  8. GLYCEOL [Concomitant]
     Dosage: 200ML PER DAY
     Route: 042
     Dates: start: 20060210
  9. PREDONINE [Concomitant]
     Indication: BRAIN NEOPLASM
     Dosage: 40MG PER DAY
     Route: 042
     Dates: start: 20060210
  10. SOLDEM 3A [Concomitant]
     Dosage: 500ML PER DAY
     Route: 042
     Dates: start: 20060210
  11. FAMOTIDINE [Concomitant]
     Indication: GASTRIC ULCER
     Dosage: 20MG PER DAY
     Route: 042
     Dates: start: 20060210
  12. VITAMEDIN [Concomitant]
     Route: 042
     Dates: start: 20060220

REACTIONS (2)
  - INAPPROPRIATE ANTIDIURETIC HORMONE SECRETION [None]
  - SOMNOLENCE [None]
